FAERS Safety Report 24788803 (Version 1)
Quarter: 2024Q4

REPORT INFORMATION
  Report Type: Report from Study
  Country: CA (occurrence: CA)
  Receive Date: 20241230
  Receipt Date: 20241230
  Transmission Date: 20250115
  Serious: Yes (Hospitalization, Other)
  Sender: BIOCON
  Company Number: CA-BIOCON BIOLOGICS LIMITED-BBL2024009490

PATIENT

DRUGS (1)
  1. HULIO [Suspect]
     Active Substance: ADALIMUMAB-FKJP
     Indication: Product used for unknown indication
     Dosage: 40 MG, BIWEEKLY
     Route: 058

REACTIONS (3)
  - Osteomyelitis [Unknown]
  - Sepsis [Unknown]
  - Infection [Unknown]

NARRATIVE: CASE EVENT DATE: 20220101
